FAERS Safety Report 7544076-1 (Version None)
Quarter: 2011Q2

REPORT INFORMATION
  Report Type: 
  Country: None (occurrence: None)
  Receive Date: 20110613
  Receipt Date: 20051213
  Transmission Date: 20111010
  Serious: Yes (Other)
  Sender: FDA-Public Use
  Company Number: PHNU2005PL04212

PATIENT
  Sex: Female
  Weight: 80 kg

DRUGS (1)
  1. LESCOL XL [Suspect]
     Route: 048

REACTIONS (2)
  - CHEST PAIN [None]
  - BLOOD PRESSURE INCREASED [None]
